FAERS Safety Report 6451978-6 (Version None)
Quarter: 2009Q4

REPORT INFORMATION
  Report Type: 
  Country: None (occurrence: None)
  Receive Date: 20091123
  Receipt Date: 20091022
  Transmission Date: 20100525
  Serious: No
  Sender: FDA-Public Use
  Company Number: US-BAYER-200915960BCC

PATIENT
  Sex: Female

DRUGS (2)
  1. ALEVE (CAPLET) [Suspect]
     Indication: ARTHRALGIA
     Route: 048
  2. ARIMIDEX [Concomitant]
     Route: 065

REACTIONS (1)
  - ARTHRALGIA [None]
